FAERS Safety Report 7298927-9 (Version None)
Quarter: 2011Q1

REPORT INFORMATION
  Report Type: 
  Country: None (occurrence: None)
  Receive Date: 20110217
  Receipt Date: 20110208
  Transmission Date: 20110831
  Serious: Yes (Hospitalization)
  Sender: FDA-Public Use
  Company Number: PHHO2011AU02181

PATIENT
  Sex: Female
  Weight: 52 kg

DRUGS (8)
  1. EVEROLIMUS [Suspect]
     Dosage: 2.5 MG DAILY
     Dates: start: 20110110
  2. SLOW-K [Concomitant]
     Indication: PROPHYLAXIS
  3. TRANEXAMIC ACID [Concomitant]
  4. EVEROLIMUS [Suspect]
     Indication: ACUTE MYELOID LEUKAEMIA
     Dosage: 5 MG DAILY
     Route: 048
     Dates: start: 20101210
  5. AZACITIDINE [Suspect]
     Indication: ACUTE MYELOID LEUKAEMIA
     Dosage: 120 MG DAILY
     Route: 048
     Dates: start: 20101206
  6. AZACITIDINE [Suspect]
     Dosage: 120 MG DAILY
     Route: 048
     Dates: start: 20100104
  7. VALACICLOVIR [Concomitant]
     Indication: PROPHYLAXIS
     Dosage: UNK
  8. OSTELIN [Concomitant]
     Indication: MEDICAL DIET

REACTIONS (2)
  - FEBRILE NEUTROPENIA [None]
  - COUGH [None]
